FAERS Safety Report 26108890 (Version 1)
Quarter: 2025Q4

REPORT INFORMATION
  Report Type: Spontaneous
  Country: KR (occurrence: KR)
  Receive Date: 20251201
  Receipt Date: 20251201
  Transmission Date: 20260118
  Serious: Yes (Death)
  Sender: AMGEN
  Company Number: KR-AMGEN-KORSP2025236017

PATIENT

DRUGS (3)
  1. ROMIPLOSTIM [Suspect]
     Active Substance: ROMIPLOSTIM
     Indication: Aplastic anaemia
     Dosage: UNK
     Route: 065
  2. EQUINE THYMOCYTE IMMUNE GLOBULIN [Concomitant]
     Active Substance: EQUINE THYMOCYTE IMMUNE GLOBULIN
     Indication: Aplastic anaemia
  3. CYCLOSPORINE [Concomitant]
     Active Substance: CYCLOSPORINE
     Indication: Aplastic anaemia

REACTIONS (9)
  - Pneumonia [Fatal]
  - Reticulin increased [Unknown]
  - Gamma-glutamyltransferase increased [Unknown]
  - Adverse drug reaction [Unknown]
  - Constipation [Unknown]
  - Headache [Unknown]
  - Adverse event [Unknown]
  - Therapy non-responder [Unknown]
  - Therapy partial responder [Unknown]
